FAERS Safety Report 21369049 (Version 12)
Quarter: 2024Q2

REPORT INFORMATION
  Report Type: Report from Study
  Country: US (occurrence: US)
  Receive Date: 20220923
  Receipt Date: 20240607
  Transmission Date: 20240716
  Serious: Yes (Hospitalization, Other)
  Sender: FDA-Public Use
  Company Number: US-ABBVIE-22K-163-4464374-00

PATIENT
  Sex: Male

DRUGS (3)
  1. IMBRUVICA [Suspect]
     Active Substance: IBRUTINIB
     Indication: Chronic lymphocytic leukaemia
     Route: 048
  2. IMBRUVICA [Suspect]
     Active Substance: IBRUTINIB
     Indication: Chronic lymphocytic leukaemia
     Route: 048
  3. IMBRUVICA [Suspect]
     Active Substance: IBRUTINIB
     Indication: Chronic lymphocytic leukaemia
     Dosage: FORM STRENGTH: 280 MG
     Route: 048

REACTIONS (34)
  - Hospitalisation [Recovering/Resolving]
  - Psychiatric symptom [Unknown]
  - Nausea [Unknown]
  - Abdominal pain [Recovering/Resolving]
  - Musculoskeletal chest pain [Recovering/Resolving]
  - Muscle strain [Recovering/Resolving]
  - Myalgia [Unknown]
  - White blood cell count increased [Recovering/Resolving]
  - Night sweats [Unknown]
  - Feeling abnormal [Unknown]
  - Depressed mood [Unknown]
  - Pain [Not Recovered/Not Resolved]
  - Drug ineffective [Unknown]
  - Epistaxis [Not Recovered/Not Resolved]
  - Back disorder [Unknown]
  - Fatigue [Not Recovered/Not Resolved]
  - Splenomegaly [Recovering/Resolving]
  - Weight decreased [Unknown]
  - Red blood cell count increased [Not Recovered/Not Resolved]
  - Hyperhidrosis [Unknown]
  - Intervertebral disc degeneration [Not Recovered/Not Resolved]
  - Diarrhoea [Unknown]
  - Impaired healing [Not Recovered/Not Resolved]
  - Haemorrhage [Unknown]
  - White blood cell count decreased [Not Recovered/Not Resolved]
  - Unevaluable event [Unknown]
  - Decreased appetite [Unknown]
  - Urinary tract infection [Unknown]
  - Pain [Unknown]
  - Skin laceration [Not Recovered/Not Resolved]
  - Nasopharyngitis [Unknown]
  - Contusion [Unknown]
  - Vomiting [Not Recovered/Not Resolved]
  - Degenerative bone disease [Not Recovered/Not Resolved]

NARRATIVE: CASE EVENT DATE: 20220101
